FAERS Safety Report 11625126 (Version 1)
Quarter: 2015Q4

REPORT INFORMATION
  Report Type: Spontaneous
  Country: GB (occurrence: GB)
  Receive Date: 20151013
  Receipt Date: 20151013
  Transmission Date: 20160304
  Serious: Yes (Other)
  Sender: FDA-Public Use
  Company Number: GB-PFIZER INC-2015335261

PATIENT
  Age: 36 Year
  Sex: Female
  Weight: 70 kg

DRUGS (4)
  1. FRAGMIN [Suspect]
     Active Substance: DALTEPARIN SODIUM
     Indication: JOINT INJURY
     Dosage: 5000 IU IN 0.2 ML
     Route: 051
     Dates: start: 20150911
  2. IBUPROFEN. [Concomitant]
     Active Substance: IBUPROFEN
     Indication: JOINT INJURY
     Dosage: 400 MG, UNK
     Dates: start: 20150911
  3. PARACETAMOL [Concomitant]
     Active Substance: ACETAMINOPHEN
     Indication: JOINT INJURY
     Dosage: 500 MG, UNK
     Dates: start: 20150911
  4. FLUOXETIN [Concomitant]
     Active Substance: FLUOXETINE HYDROCHLORIDE
     Dosage: 10 MG, 1X/DAY

REACTIONS (4)
  - Dizziness [Recovering/Resolving]
  - Balance disorder [Recovering/Resolving]
  - Decreased appetite [Recovering/Resolving]
  - Nausea [Recovering/Resolving]

NARRATIVE: CASE EVENT DATE: 20150911
